FAERS Safety Report 5568108-5 (Version None)
Quarter: 2007Q4

REPORT INFORMATION
  Report Type: 
  Country: None (occurrence: None)
  Receive Date: 20071220
  Receipt Date: 20071120
  Transmission Date: 20080405
  Serious: No
  Sender: FDA-Public Use
  Company Number: US-BAYER-200714654NA

PATIENT
  Age: 59 Year
  Sex: Male

DRUGS (7)
  1. LEVITRA [Suspect]
     Indication: PROSTATECTOMY
     Dosage: TOTAL DAILY DOSE: 10 MG  UNIT DOSE: 10 MG
     Route: 048
     Dates: start: 20071117, end: 20071117
  2. LIPITOR [Concomitant]
     Indication: BLOOD CHOLESTEROL INCREASED
     Route: 048
  3. VASERETIC [Concomitant]
     Indication: HYPERTENSION
     Route: 048
  4. ACTO-PLUS [Concomitant]
     Indication: DIABETES MELLITUS
     Route: 048
  5. ASPIRIN [Concomitant]
     Indication: ROUTINE HEALTH MAINTENANCE
     Route: 048
  6. VITAMIN D [Concomitant]
  7. CINNAMON [Concomitant]
     Indication: DIABETES MELLITUS
     Route: 048

REACTIONS (1)
  - SOMNOLENCE [None]
